FAERS Safety Report 6252328-0 (Version None)
Quarter: 2009Q2

REPORT INFORMATION
  Report Type: 
  Country: None (occurrence: None)
  Receive Date: 20090629
  Receipt Date: 20090629
  Transmission Date: 20091009
  Serious: Yes (Other)
  Sender: FDA-Public Use
  Company Number: None

PATIENT
  Sex: Female
  Weight: 65.7716 kg

DRUGS (1)
  1. FORTEO [Suspect]
     Indication: OSTEOPOROSIS
     Dosage: 1 SHOT IN UPPER LEG 1 TIME

REACTIONS (4)
  - DRUG INTOLERANCE [None]
  - DYSSTASIA [None]
  - HEART RATE INCREASED [None]
  - MUSCULAR WEAKNESS [None]
